FAERS Safety Report 16587526 (Version 2)
Quarter: 2019Q3

REPORT INFORMATION
  Report Type: Report from Study
  Country: IT (occurrence: IT)
  Receive Date: 20190717
  Receipt Date: 20190910
  Transmission Date: 20191004
  Serious: Yes (Death, Hospitalization)
  Sender: FDA-Public Use
  Company Number: IT-MYLANLABS-2019M1067011

PATIENT
  Age: 39 Year
  Sex: Male

DRUGS (11)
  1. SEQUACOR [Concomitant]
     Active Substance: BISOPROLOL
  2. GAVISCON ADVANCE                   /00926503/ [Concomitant]
     Active Substance: SODIUM ALGINATE
  3. CORTONE ACETATO [Suspect]
     Active Substance: CORTISONE ACETATE
     Indication: PAIN
     Dosage: 50 MILLIGRAM, QD
     Route: 048
     Dates: start: 20120101, end: 20190130
  4. BRUFEN 800 MG COMPRESSE RIVESTITE A RILASCIO PROLUNGATO [Suspect]
     Active Substance: IBUPROFEN
     Indication: PAIN
     Dosage: 1600 MILLIGRAM, QD
     Route: 048
     Dates: start: 20190126, end: 20190130
  5. SYNACTHEN                          /00055703/ [Suspect]
     Active Substance: DOXYCYCLINE HYDROCHLORIDE
     Indication: PAIN
     Dosage: 0.25 MILLIGRAM, QD
     Route: 030
     Dates: start: 20190126, end: 20190130
  6. DIBASE [Concomitant]
     Active Substance: CHOLECALCIFEROL
     Dosage: UNK
  7. ALGIX [Suspect]
     Active Substance: ETORICOXIB
     Indication: PAIN
     Dosage: 60 MILLIGRAM, QD
     Route: 048
     Dates: start: 20190121, end: 20190130
  8. LASIX [Concomitant]
     Active Substance: FUROSEMIDE
  9. KENACORT [Suspect]
     Active Substance: TRIAMCINOLONE
     Indication: ARTHRALGIA
     Dosage: 40 MILLIGRAM, Q2D
     Route: 030
     Dates: start: 20190115, end: 20190130
  10. PATROL [Concomitant]
     Active Substance: ACETAMINOPHEN\TRAMADOL HYDROCHLORIDE
  11. CACIT                              /00944201/ [Concomitant]
     Active Substance: CALCIUM CARBONATE\CHOLECALCIFEROL

REACTIONS (4)
  - Respiratory depression [Fatal]
  - Cushing^s syndrome [Fatal]
  - Urinary retention [Fatal]
  - Cardiac failure [Fatal]

NARRATIVE: CASE EVENT DATE: 20190130
